FAERS Safety Report 22345354 (Version 1)
Quarter: 2023Q2

REPORT INFORMATION
  Report Type: Spontaneous
  Country: FR (occurrence: FR)
  Receive Date: 20230519
  Receipt Date: 20230519
  Transmission Date: 20230721
  Serious: Yes (Other)
  Sender: FDA-Public Use
  Company Number: FR-PFIZER INC-PV202300088107

PATIENT
  Age: 73 Year
  Sex: Male

DRUGS (6)
  1. VYNDAQEL [Suspect]
     Active Substance: TAFAMIDIS MEGLUMINE
     Dosage: 20 MG, 1X/DAY
     Dates: start: 202205
  2. VYNDAQEL [Suspect]
     Active Substance: TAFAMIDIS MEGLUMINE
     Dosage: 61 MG, 1X/DAY
     Dates: start: 202206, end: 202207
  3. AMIODARONE [Concomitant]
     Active Substance: AMIODARONE
  4. KARDEGIC [Concomitant]
     Active Substance: ASPIRIN DL-LYSINE
  5. ELIQUIS [Concomitant]
     Active Substance: APIXABAN
  6. INSPRA [Concomitant]
     Active Substance: EPLERENONE

REACTIONS (1)
  - Bladder obstruction [Unknown]
